FAERS Safety Report 13367389 (Version 1)
Quarter: 2017Q1

REPORT INFORMATION
  Report Type: Spontaneous
  Country: US (occurrence: US)
  Receive Date: 20170324
  Receipt Date: 20170324
  Transmission Date: 20170429
  Serious: No
  Sender: FDA-Public Use
  Company Number: US-BAYER-2017-056712

PATIENT

DRUGS (1)
  1. FINACEA [Suspect]
     Active Substance: AZELAIC ACID
     Dosage: UNK

REACTIONS (2)
  - Product use issue [None]
  - Product container issue [None]
